FAERS Safety Report 24407508 (Version 2)
Quarter: 2024Q4

REPORT INFORMATION
  Report Type: Spontaneous
  Country: US (occurrence: US)
  Receive Date: 20241007
  Receipt Date: 20241015
  Transmission Date: 20250114
  Serious: Yes (Other)
  Sender: CIPLA
  Company Number: US-CIPLA LTD.-2024US10878

PATIENT

DRUGS (2)
  1. ALBUTEROL [Suspect]
     Active Substance: ALBUTEROL
     Indication: Cough
     Dosage: UNK, PRN (1 TO 2 PUFFS EVERY 6 HOURS OR AS NEEDED)
     Dates: start: 202408
  2. ALBUTEROL [Suspect]
     Active Substance: ALBUTEROL
     Dosage: UNK (TOOK AT LEAST 8 TO 10 PUFFS EVEN IN 3 HOURS)
     Dates: start: 2024, end: 2024

REACTIONS (13)
  - Gastrointestinal candidiasis [Not Recovered/Not Resolved]
  - Oesophageal candidiasis [Not Recovered/Not Resolved]
  - Mental impairment [Unknown]
  - Intentional product misuse [Unknown]
  - COVID-19 [Not Recovered/Not Resolved]
  - Candida infection [Not Recovered/Not Resolved]
  - Oral candidiasis [Not Recovered/Not Resolved]
  - Ear discomfort [Not Recovered/Not Resolved]
  - Gastritis [Not Recovered/Not Resolved]
  - Cough [Not Recovered/Not Resolved]
  - Head discomfort [Not Recovered/Not Resolved]
  - Anxiety [Unknown]
  - Dizziness [Not Recovered/Not Resolved]

NARRATIVE: CASE EVENT DATE: 20240101
